FAERS Safety Report 5964070-1 (Version None)
Quarter: 2008Q4

REPORT INFORMATION
  Report Type: 
  Country: None (occurrence: None)
  Receive Date: 20081124
  Receipt Date: 20081104
  Transmission Date: 20090506
  Serious: Yes (Other)
  Sender: FDA-Public Use
  Company Number: DE-ASTRAZENECA-2008PK02155

PATIENT
  Age: 902 Month
  Sex: Female
  Weight: 64 kg

DRUGS (4)
  1. ARIMIDEX [Suspect]
     Indication: BREAST CANCER
     Route: 048
     Dates: start: 20060901
  2. COAPROVEL [Concomitant]
     Indication: HYPERTENSION
     Dosage: 150/12.5 MG ONCE DAILY
     Route: 048
     Dates: start: 20040701
  3. BELOC ZOK [Concomitant]
     Indication: HYPERTENSION
     Route: 048
     Dates: start: 20040701
  4. ASPIRIN [Concomitant]
     Indication: HYPERTENSION
     Route: 048
     Dates: start: 20060901

REACTIONS (1)
  - OVARIAN CYST [None]
